FAERS Safety Report 5818771-6 (Version None)
Quarter: 2008Q3

REPORT INFORMATION
  Report Type: 
  Country: None (occurrence: None)
  Receive Date: 20080721
  Receipt Date: 20080721
  Transmission Date: 20090109
  Serious: No
  Sender: FDA-Public Use
  Company Number: None

PATIENT
  Age: 58 Year
  Sex: Female
  Weight: 58.514 kg

DRUGS (4)
  1. REMICADE [Suspect]
     Indication: CROHN'S DISEASE
     Dosage: 400 MG EVERY 6 WEEKS IV
     Route: 042
     Dates: start: 20041108, end: 20070819
  2. REMICADE [Suspect]
     Indication: SPONDYLOARTHROPATHY
     Dosage: 400 MG EVERY 6 WEEKS IV
     Route: 042
     Dates: start: 20041108, end: 20070819
  3. HUMIRA [Suspect]
     Indication: CROHN'S DISEASE
     Dosage: 40 MG EVERY 2 WEEKS IM
     Route: 030
     Dates: start: 20070929, end: 20071203
  4. HUMIRA [Suspect]
     Indication: SPONDYLOARTHROPATHY
     Dosage: 40 MG EVERY 2 WEEKS IM
     Route: 030
     Dates: start: 20070929, end: 20071203

REACTIONS (2)
  - LUPUS-LIKE SYNDROME [None]
  - MALAISE [None]
